FAERS Safety Report 7104431-0 (Version None)
Quarter: 2010Q4

REPORT INFORMATION
  Report Type: 
  Country: None (occurrence: None)
  Receive Date: 20101116
  Receipt Date: 20101102
  Transmission Date: 20110411
  Serious: Yes (Hospitalization)
  Sender: FDA-Public Use
  Company Number: DE-BIOGENIDEC-2010BI038559

PATIENT
  Age: 52 Year
  Sex: Female

DRUGS (6)
  1. TYSABRI [Suspect]
     Indication: MULTIPLE SCLEROSIS
     Route: 042
     Dates: start: 20071218, end: 20100901
  2. TOLPERISON [Concomitant]
     Indication: MUSCLE SPASTICITY
  3. CALCIUM AND VITAMIN D [Concomitant]
     Indication: OSTEOPOROSIS PROPHYLAXIS
  4. THYRONAJOD [Concomitant]
     Indication: HYPOTHYROIDISM
  5. SIMVASTATIN [Concomitant]
     Indication: HYPERCHOLESTEROLAEMIA
  6. MAGNESIUM [Concomitant]
     Indication: MUSCLE SPASMS

REACTIONS (1)
  - INTERVERTEBRAL DISC PROTRUSION [None]
